FAERS Safety Report 9730472 (Version 1)
Quarter: 2013Q4

REPORT INFORMATION
  Report Type: Spontaneous
  Country: US (occurrence: US)
  Receive Date: 20131202
  Receipt Date: 20131202
  Transmission Date: 20140711
  Serious: Yes (Other)
  Sender: FDA-Public Use
  Company Number: US-BAYER-2013-143096

PATIENT
  Age: 12 Year
  Sex: Male
  Weight: 63.49 kg

DRUGS (6)
  1. BAYER ASPIRIN REGIMEN REGULAR 325 MG STRENGTH [Suspect]
     Dosage: 10 OR MORE DF,UNK
     Route: 048
  2. CLONIDINE [Concomitant]
  3. ABILIFY [Concomitant]
  4. ZOLOFT [Concomitant]
  5. GUANFACINE [Concomitant]
  6. VYVANSE [Concomitant]

REACTIONS (4)
  - Self injurious behaviour [None]
  - Intentional overdose [None]
  - Expired drug administered [None]
  - Somnolence [None]
